FAERS Safety Report 6306911-4 (Version None)
Quarter: 2009Q3

REPORT INFORMATION
  Report Type: 
  Country: None (occurrence: None)
  Receive Date: 20090811
  Receipt Date: 20090811
  Transmission Date: 20100115
  Serious: Yes (Hospitalization)
  Sender: FDA-Public Use
  Company Number: None

PATIENT
  Age: 43 Year
  Sex: Female
  Weight: 105.2345 kg

DRUGS (1)
  1. BUPROPION HCL [Suspect]
     Indication: DEPRESSION
     Dosage: 150MG ONCE DAILY  PO
     Route: 048
     Dates: start: 20090527, end: 20090616

REACTIONS (3)
  - IMPAIRED WORK ABILITY [None]
  - SERUM SICKNESS [None]
  - URTICARIA [None]
